FAERS Safety Report 5527979-9 (Version None)
Quarter: 2007Q4

REPORT INFORMATION
  Report Type: 
  Country: None (occurrence: None)
  Receive Date: 20071123
  Receipt Date: 20071114
  Transmission Date: 20080405
  Serious: Yes (Other)
  Sender: FDA-Public Use
  Company Number: GR-1164556

PATIENT
  Age: 76 Year
  Sex: Male

DRUGS (1)
  1. ICAPS (ICAPS) CAPSULES LOT# UNK CAPSULE [Suspect]
     Dosage: ORAL
     Route: 048

REACTIONS (8)
  - APHONIA [None]
  - CAUSTIC INJURY [None]
  - CHEST PAIN [None]
  - DYSPEPSIA [None]
  - DYSPNOEA [None]
  - LARYNGEAL OEDEMA [None]
  - PHARYNGEAL OEDEMA [None]
  - THROAT IRRITATION [None]
